FAERS Safety Report 5989227-5 (Version None)
Quarter: 2008Q4

REPORT INFORMATION
  Report Type: 
  Country: None (occurrence: None)
  Receive Date: 20081210
  Receipt Date: 20081128
  Transmission Date: 20090506
  Serious: Yes (Other)
  Sender: FDA-Public Use
  Company Number: CA-JNJFOC-20080605962

PATIENT
  Sex: Female
  Weight: 48 kg

DRUGS (7)
  1. REMICADE [Suspect]
     Route: 042
  2. REMICADE [Suspect]
     Route: 042
  3. REMICADE [Suspect]
     Indication: CROHN'S DISEASE
     Route: 042
  4. BENADRYL [Concomitant]
     Route: 048
  5. PREDNISONE TAB [Concomitant]
     Route: 048
  6. PREVACID [Concomitant]
     Route: 048
  7. AZATHIOPRINE [Concomitant]

REACTIONS (2)
  - BASAL CELL CARCINOMA [None]
  - LUPUS-LIKE SYNDROME [None]
